FAERS Safety Report 11637197 (Version 1)
Quarter: 2015Q4

REPORT INFORMATION
  Report Type: Spontaneous
  Country: US (occurrence: None)
  Receive Date: 20151014
  Receipt Date: 20151014
  Transmission Date: 20160304
  Serious: Yes (Hospitalization, Other)
  Sender: FDA-Public Use
  Company Number: 1713747-2015-999376

PATIENT
  Age: 62 Year
  Sex: Female
  Weight: 49.9 kg

DRUGS (5)
  1. OVER-THE-COUNTER DULCOLAX 5MG BY MOUTH EVERY THREE DAYS [Concomitant]
  2. LIBERTY CYCLER SET [Concomitant]
     Active Substance: DEVICE
  3. METOCLOPRAMIDE. [Concomitant]
     Active Substance: METOCLOPRAMIDE
  4. DELFLEX [Suspect]
     Active Substance: CALCIUM CHLORIDE\DEXTROSE MONOHYDRATE\MAGNESIUM CHLORIDE\SODIUM CHLORIDE\SODIUM LACTATE
     Indication: PERITONEAL DIALYSIS
     Route: 033
  5. LIBERTY CYCLER [Concomitant]
     Active Substance: DEVICE

REACTIONS (3)
  - Metabolic acidosis [None]
  - Peritonitis bacterial [None]
  - Hypokalaemia [None]

NARRATIVE: CASE EVENT DATE: 20150825
